FAERS Safety Report 5367551-7 (Version None)
Quarter: 2007Q2

REPORT INFORMATION
  Report Type: 
  Country: None (occurrence: None)
  Receive Date: 20070622
  Receipt Date: 20070619
  Transmission Date: 20071010
  Serious: Yes (Other)
  Sender: FDA-Public Use
  Company Number: US-ASTRAZENECA-2007UW14610

PATIENT
  Age: 48 Year
  Sex: Female

DRUGS (4)
  1. NOLVADEX [Suspect]
     Indication: BREAST CANCER
     Route: 048
  2. NOLVADEX [Suspect]
     Indication: MALIGNANT BREAST LUMP REMOVAL
     Route: 048
  3. FEMARA [Concomitant]
  4. ARIMIDEX [Concomitant]
     Route: 048

REACTIONS (7)
  - BACK PAIN [None]
  - CATARACT [None]
  - DIARRHOEA [None]
  - HEADACHE [None]
  - HYPERTENSION [None]
  - OVARIAN DISORDER [None]
  - VISION BLURRED [None]
